FAERS Safety Report 11856882 (Version 1)
Quarter: 2015Q4

REPORT INFORMATION
  Report Type: Spontaneous
  Country: US (occurrence: US)
  Receive Date: 20151221
  Receipt Date: 20151221
  Transmission Date: 20160305
  Serious: No
  Sender: FDA-Public Use
  Company Number: US-PERRIGO-15US012712

PATIENT
  Age: 2 Year
  Sex: Female
  Weight: 17.69 kg

DRUGS (1)
  1. CETIRIZINE HYDROCHLORIDE. [Suspect]
     Active Substance: CETIRIZINE HYDROCHLORIDE
     Indication: SEASONAL ALLERGY
     Dosage: 5 MG, QD
     Route: 048
     Dates: start: 20151125, end: 20151201

REACTIONS (1)
  - Papule [Not Recovered/Not Resolved]

NARRATIVE: CASE EVENT DATE: 20151129
